FAERS Safety Report 16394444 (Version 3)
Quarter: 2019Q3

REPORT INFORMATION
  Report Type: Spontaneous
  Country: US (occurrence: US)
  Receive Date: 20190605
  Receipt Date: 20190801
  Transmission Date: 20191004
  Serious: Yes (Life-Threatening, Hospitalization, Other)
  Sender: FDA-Public Use
  Company Number: US-PFIZER INC-2019239470

PATIENT
  Age: 68 Year
  Sex: Male
  Weight: 69.4 kg

DRUGS (3)
  1. CALCIUM+VITAMIN D3 [Concomitant]
     Active Substance: CALCIUM\CHOLECALCIFEROL
     Dosage: UNK
  2. ASPIRIN [ACETYLSALICYLIC ACID] [Concomitant]
     Active Substance: ASPIRIN
     Dosage: UNK
  3. XELJANZ [Suspect]
     Active Substance: TOFACITINIB CITRATE
     Indication: COLITIS ULCERATIVE
     Dosage: 10 MG, 2X/DAY
     Route: 048
     Dates: start: 20190315, end: 20190425

REACTIONS (3)
  - Acute myocardial infarction [Recovered/Resolved with Sequelae]
  - Ischaemic cardiomyopathy [Recovered/Resolved with Sequelae]
  - Cardiogenic shock [Recovered/Resolved with Sequelae]

NARRATIVE: CASE EVENT DATE: 20190425
